FAERS Safety Report 13735872 (Version 1)
Quarter: 2017Q3

REPORT INFORMATION
  Report Type: Spontaneous
  Country: US (occurrence: US)
  Receive Date: 20170710
  Receipt Date: 20170710
  Transmission Date: 20171127
  Serious: No
  Sender: FDA-Public Use
  Company Number: US-SUNOVION-2017SUN002798

PATIENT

DRUGS (2)
  1. KLONOPIN [Suspect]
     Active Substance: CLONAZEPAM
  2. LATUDA [Suspect]
     Active Substance: LURASIDONE HYDROCHLORIDE
     Indication: SCHIZOAFFECTIVE DISORDER BIPOLAR TYPE
     Dosage: UNK
     Route: 048

REACTIONS (10)
  - Sensory disturbance [Unknown]
  - Agitation [Unknown]
  - Insomnia [Unknown]
  - Disorientation [Unknown]
  - Feeling abnormal [Unknown]
  - Bruxism [Unknown]
  - Energy increased [Unknown]
  - Apathy [Unknown]
  - Pressure of speech [Unknown]
  - Hypomania [Unknown]
